FAERS Safety Report 5396654-6 (Version None)
Quarter: 2007Q3

REPORT INFORMATION
  Report Type: 
  Country: None (occurrence: None)
  Receive Date: 20070725
  Receipt Date: 20070712
  Transmission Date: 20080115
  Serious: Yes (Other)
  Sender: FDA-Public Use
  Company Number: B0474648A

PATIENT
  Age: 76 Year
  Sex: Female
  Weight: 80 kg

DRUGS (2)
  1. AVANDIA [Suspect]
     Route: 048
     Dates: start: 20070101
  2. GLIPIZIDE [Concomitant]

REACTIONS (7)
  - DYSPNOEA [None]
  - DYSPNOEA EXERTIONAL [None]
  - FEELING HOT [None]
  - JOINT SWELLING [None]
  - OEDEMA PERIPHERAL [None]
  - ORTHOPNOEA [None]
  - WEIGHT INCREASED [None]
